FAERS Safety Report 17093424 (Version 3)
Quarter: 2019Q4

REPORT INFORMATION
  Report Type: Spontaneous
  Country: PT (occurrence: PT)
  Receive Date: 20191129
  Receipt Date: 20191212
  Transmission Date: 20200122
  Serious: Yes (Other)
  Sender: FDA-Public Use
  Company Number: PT-IPSEN BIOPHARMACEUTICALS, INC.-2019-23668

PATIENT
  Age: 39 Year
  Sex: Female

DRUGS (5)
  1. AZZALURE [Suspect]
     Active Substance: BOTULINUM TOXIN TYPE A
     Indication: OFF LABEL USE
  2. AZZALURE [Suspect]
     Active Substance: BOTULINUM TOXIN TYPE A
     Indication: SKIN WRINKLING
  3. AZZALURE [Suspect]
     Active Substance: BOTULINUM TOXIN TYPE A
     Indication: SKIN WRINKLING
  4. RESTYLANE [Suspect]
     Active Substance: HYALURONIC ACID
     Indication: SKIN WRINKLING
     Dosage: FIRST 0.5 FILLER, TOO MUCH 0.9 FILLER IN LOWER LIPS 1.0 ML FILLER ALL USED ON BOTTOM LIPS
     Dates: start: 20191113
  5. AZZALURE [Suspect]
     Active Substance: BOTULINUM TOXIN TYPE A
     Indication: SKIN WRINKLING
     Dosage: NOT REPORTED
     Route: 065
     Dates: start: 20191030, end: 20191030

REACTIONS (12)
  - Off label use [Unknown]
  - Lip disorder [Not Recovered/Not Resolved]
  - Injection site haematoma [Not Recovered/Not Resolved]
  - Swelling [Not Recovered/Not Resolved]
  - Pain [Unknown]
  - Facial asymmetry [Not Recovered/Not Resolved]
  - Neuromuscular pain [Not Recovered/Not Resolved]
  - Muscle tightness [Not Recovered/Not Resolved]
  - Neck pain [Not Recovered/Not Resolved]
  - Paralysis [Not Recovered/Not Resolved]
  - Skin burning sensation [Unknown]
  - Contusion [Not Recovered/Not Resolved]

NARRATIVE: CASE EVENT DATE: 2019
